FAERS Safety Report 8286593-5 (Version None)
Quarter: 2012Q1

REPORT INFORMATION
  Report Type: 
  Country: None (occurrence: None)
  Receive Date: 20120323
  Receipt Date: 20120312
  Transmission Date: 20120608
  Serious: Yes (Hospitalization)
  Sender: FDA-Public Use
  Company Number: 2012031598

PATIENT
  Age: 54 Year
  Sex: Female
  Weight: 74.8435 kg

DRUGS (7)
  1. AZELASTINE HCL [Concomitant]
  2. ALBUTEROL [Concomitant]
  3. HIZENTRA [Suspect]
     Indication: IMMUNODEFICIENCY
     Dates: start: 20120304
  4. HIZENTRA [Suspect]
     Indication: IMMUNODEFICIENCY
     Dosage: 10 G 1X/WEEK, 10 G (50 ML) VIA 4 SITES OVER 1 HOURS 45 MINUTES SUBCUTANEOUS)
     Route: 058
     Dates: start: 20100829
  5. SYNTHROID [Concomitant]
  6. ADVAIR HFA [Concomitant]
  7. HIZENTRA [Suspect]
     Indication: IMMUNODEFICIENCY
     Dates: start: 20120304

REACTIONS (4)
  - ABDOMINAL PAIN [None]
  - HELICOBACTER GASTRITIS [None]
  - GASTROINTESTINAL TRACT IRRITATION [None]
  - INFECTION [None]
